FAERS Safety Report 9931439 (Version 1)
Quarter: 2014Q1

REPORT INFORMATION
  Report Type: Spontaneous
  Country: IT (occurrence: IT)
  Receive Date: 20140228
  Receipt Date: 20140228
  Transmission Date: 20141002
  Serious: Yes (Hospitalization)
  Sender: FDA-Public Use
  Company Number: IT-ACCORD-022085

PATIENT
  Age: 31 Year
  Sex: Male

DRUGS (5)
  1. ALLOPURINOL [Suspect]
     Indication: HYPERURICAEMIA
  2. PYRAZINAMIDE [Concomitant]
     Indication: PULMONARY TUBERCULOSIS
  3. ISONIAZID/ISONIAZID CALCIUM PYRUVINATE/ISONIAZID SODIUM GLUCURONATE [Concomitant]
     Indication: PULMONARY TUBERCULOSIS
  4. ETHAMBUTOL [Concomitant]
     Indication: PULMONARY TUBERCULOSIS
  5. RIFAMPICIN [Concomitant]
     Indication: PULMONARY TUBERCULOSIS

REACTIONS (2)
  - Vasculitis cerebral [Recovered/Resolved]
  - Drug reaction with eosinophilia and systemic symptoms [Unknown]
